FAERS Safety Report 4519977-9 (Version None)
Quarter: 2004Q4

REPORT INFORMATION
  Report Type: 
  Country: None (occurrence: None)
  Receive Date: 20041207
  Receipt Date: 20041122
  Transmission Date: 20050328
  Serious: Yes (Life-Threatening, Hospitalization, Other)
  Sender: FDA-Public Use
  Company Number: US-MERCK-0411USA03582

PATIENT
  Age: 74 Year
  Sex: Female
  Weight: 62 kg

DRUGS (10)
  1. VIOXX [Suspect]
     Indication: ARTHRITIS
     Route: 048
     Dates: start: 20011010, end: 20041001
  2. VIOXX [Suspect]
     Indication: COMPRESSION FRACTURE
     Route: 048
     Dates: start: 20011010, end: 20041001
  3. MIACALCIN [Concomitant]
     Indication: ARTHRITIS
     Route: 065
  4. FOSAMAX [Concomitant]
     Route: 065
  5. KLOR-CON [Concomitant]
     Route: 065
  6. NADOLOL [Concomitant]
     Route: 065
  7. DOXEPIN HYDROCHLORIDE [Concomitant]
     Route: 065
  8. IMDUR [Concomitant]
     Route: 065
  9. ZOCOR [Concomitant]
     Route: 065
  10. LASIX [Concomitant]
     Route: 065

REACTIONS (1)
  - TRANSIENT ISCHAEMIC ATTACK [None]
